FAERS Safety Report 8190364-8 (Version None)
Quarter: 2012Q1

REPORT INFORMATION
  Report Type: 
  Country: None (occurrence: None)
  Receive Date: 20120307
  Receipt Date: 20120302
  Transmission Date: 20120608
  Serious: Yes (Other)
  Sender: FDA-Public Use
  Company Number: US-PFIZER INC-2012057945

PATIENT
  Sex: Male

DRUGS (5)
  1. OYSTER SHELL [Concomitant]
     Dosage: UNK
  2. GEODON [Suspect]
     Dosage: 80 MG, 2X/DAY (1 PO BID)
     Route: 048
  3. ZOLOFT [Suspect]
     Dosage: 50 MG, 1X/DAY (1 PO QD AM)
     Route: 048
  4. CARBAMAZEPINE [Concomitant]
     Dosage: UNK
  5. GEODON [Suspect]
     Dosage: 40 MG, 1X/DAY (1 PO QD AM)
     Route: 048

REACTIONS (1)
  - MENTAL RETARDATION [None]
